FAERS Safety Report 10075659 (Version 1)
Quarter: 2014Q2

REPORT INFORMATION
  Report Type: Spontaneous
  Country: CH (occurrence: CH)
  Receive Date: 20140414
  Receipt Date: 20140414
  Transmission Date: 20141212
  Serious: Yes (Other)
  Sender: FDA-Public Use
  Company Number: CH-JNJFOC-20140407210

PATIENT
  Age: 58 Year
  Sex: Male

DRUGS (14)
  1. PALEXIA [Suspect]
     Indication: ARTHRALGIA
     Route: 048
     Dates: start: 20140318, end: 20140321
  2. PALEXIA [Suspect]
     Indication: ARTHRALGIA
     Route: 048
     Dates: start: 20140317, end: 20140317
  3. PALEXIA [Suspect]
     Indication: ARTHRALGIA
     Route: 048
     Dates: start: 20140317, end: 20140317
  4. PALEXIA [Suspect]
     Indication: ARTHRALGIA
     Route: 048
     Dates: start: 20140314, end: 20140316
  5. TRAMAL [Concomitant]
     Indication: PRODUCT USED FOR UNKNOWN INDICATION
     Route: 048
  6. LEVEMIR [Concomitant]
     Indication: PRODUCT USED FOR UNKNOWN INDICATION
     Route: 058
  7. INEGY [Concomitant]
     Indication: HYPERCHOLESTEROLAEMIA
     Route: 048
  8. CO-DAFALGAN [Concomitant]
     Indication: PRODUCT USED FOR UNKNOWN INDICATION
     Route: 048
  9. NOVALGIN [Concomitant]
     Indication: PRODUCT USED FOR UNKNOWN INDICATION
     Route: 048
  10. NOVORAPID [Concomitant]
     Indication: DIABETES MELLITUS
     Route: 058
  11. AMLOVASC [Concomitant]
     Indication: HYPERTONIA
     Route: 048
  12. ASPIRIN CARDIO [Concomitant]
     Indication: PRODUCT USED FOR UNKNOWN INDICATION
     Route: 065
  13. BILOL [Concomitant]
     Indication: HYPERTONIA
     Route: 048
  14. PREDNISON [Concomitant]
     Indication: PRODUCT USED FOR UNKNOWN INDICATION
     Route: 048

REACTIONS (1)
  - Muscle spasms [Recovered/Resolved]
